FAERS Safety Report 4289345-6 (Version None)
Quarter: 2004Q1

REPORT INFORMATION
  Report Type: 
  Country: None (occurrence: None)
  Receive Date: 20040203
  Receipt Date: 20001214
  Transmission Date: 20041129
  Serious: Yes (Other)
  Sender: FDA-Public Use
  Company Number: 2000-128

PATIENT
  Age: 18 Year
  Sex: Male
  Weight: 68.0396 kg

DRUGS (4)
  1. DORYX [Suspect]
     Indication: ACNE
     Dosage: 100 MG QD ORAL
     Route: 048
     Dates: start: 20001204, end: 20001207
  2. DIFFERIN TOPICAL GEL [Concomitant]
  3. AZELEX [Concomitant]
  4. BENZAC AC WASH [Concomitant]

REACTIONS (1)
  - VISUAL DISTURBANCE [None]
